FAERS Safety Report 7908858 (Version 3)
Quarter: 2013Q3

REPORT INFORMATION
  Report Type: Spontaneous
  Country: US (occurrence: US)
  Receive Date: 20110421
  Receipt Date: 20130709
  Transmission Date: 20140515
  Serious: Yes (Hospitalization, Other)
  Sender: FDA-Public Use
  Company Number: US-JNJFOC-20110405728

PATIENT
  Sex: Female
  Weight: 81.65 kg

DRUGS (6)
  1. DURAGESIC [Suspect]
     Indication: BONE PAIN
     Route: 062
  2. UNSPECIFIED FENTANYL TRANSDERMAL SYSTEM [Suspect]
     Indication: BONE PAIN
     Route: 062
  3. DURAGESIC [Suspect]
     Indication: BONE PAIN
     Route: 062
     Dates: start: 2012
  4. DURAGESIC [Suspect]
     Indication: BONE PAIN
     Route: 062
  5. DURAGESIC [Suspect]
     Indication: BONE PAIN
     Route: 062
  6. DURAGESIC [Suspect]
     Indication: BONE PAIN
     Route: 062

REACTIONS (13)
  - Intervertebral disc disorder [Not Recovered/Not Resolved]
  - Heart rate irregular [Recovered/Resolved]
  - Palpitations [Recovered/Resolved]
  - Intervertebral disc disorder [Not Recovered/Not Resolved]
  - Body temperature decreased [Recovered/Resolved]
  - Laryngeal injury [Recovered/Resolved]
  - Ulcer haemorrhage [Recovered/Resolved]
  - Drug ineffective [Recovered/Resolved]
  - Body height decreased [Recovered/Resolved]
  - Nervousness [Not Recovered/Not Resolved]
  - Muscle spasms [Not Recovered/Not Resolved]
  - Arthralgia [Not Recovered/Not Resolved]
  - Abnormal loss of weight [Recovered/Resolved]
